FAERS Safety Report 7824622-0 (Version None)
Quarter: 2011Q4

REPORT INFORMATION
  Report Type: 
  Country: None (occurrence: None)
  Receive Date: 20111019
  Receipt Date: 20111005
  Transmission Date: 20120403
  Serious: Yes (Hospitalization)
  Sender: FDA-Public Use
  Company Number: US-BAYER-2011-048262

PATIENT
  Age: 27 Year
  Sex: Female
  Weight: 70.295 kg

DRUGS (9)
  1. YAZ [Suspect]
     Indication: CONTRACEPTION
     Dosage: UNK
     Dates: start: 20040101, end: 20090101
  2. VICODIN [Concomitant]
     Indication: EAR PAIN
  3. YASMIN [Suspect]
     Indication: CONTRACEPTION
     Dosage: UNK
     Dates: start: 20040101, end: 20090101
  4. ACETAMINOPHEN AND HYDROCODONE BITARTRATE [Concomitant]
  5. PREVACID [Concomitant]
  6. YASMIN [Suspect]
     Indication: PREMENSTRUAL SYNDROME
  7. LEXAPRO [Concomitant]
  8. YAZ [Suspect]
     Indication: PREMENSTRUAL SYNDROME
  9. ACIPHEX [Concomitant]

REACTIONS (6)
  - CHOLECYSTITIS CHRONIC [None]
  - CHOLECYSTECTOMY [None]
  - PAIN [None]
  - HEPATECTOMY [None]
  - BILIARY DYSKINESIA [None]
  - INJURY [None]
